FAERS Safety Report 6631189-1 (Version None)
Quarter: 2010Q1

REPORT INFORMATION
  Report Type: 
  Country: None (occurrence: None)
  Receive Date: 20100309
  Receipt Date: 20100222
  Transmission Date: 20100710
  Serious: Yes (Life-Threatening, Hospitalization, Other)
  Sender: FDA-Public Use
  Company Number: 1000011881

PATIENT
  Age: 36 Year
  Sex: Female

DRUGS (3)
  1. ESCITALOPRAM OXALATE [Suspect]
  2. OLANZAPINE [Suspect]
     Dosage: (300 MG, ONCE)
  3. CHLORPROMAZINE [Suspect]
     Dosage: (700 MG, ONCE)

REACTIONS (9)
  - ATAXIA [None]
  - BLOOD CREATININE INCREASED [None]
  - FAECAL INCONTINENCE [None]
  - MULTIPLE DRUG OVERDOSE [None]
  - MUSCLE RIGIDITY [None]
  - NEUROLEPTIC MALIGNANT SYNDROME [None]
  - PNEUMONIA ASPIRATION [None]
  - POISONING DELIBERATE [None]
  - URINARY INCONTINENCE [None]
